FAERS Safety Report 13843057 (Version 1)
Quarter: 2017Q3

REPORT INFORMATION
  Report Type: Spontaneous
  Country: JP (occurrence: JP)
  Receive Date: 20170808
  Receipt Date: 20170808
  Transmission Date: 20171127
  Serious: Yes (Hospitalization, Other)
  Sender: FDA-Public Use
  Company Number: JP-GLAXOSMITHKLINE-JP2017JPN119714

PATIENT
  Age: 77 Year
  Sex: Male
  Weight: 69 kg

DRUGS (8)
  1. RHEUMATREX [Concomitant]
     Active Substance: METHOTREXATE SODIUM
     Dosage: 8 MG, WE
     Dates: start: 20160407
  2. CARERAM [Concomitant]
     Active Substance: IGURATIMOD
     Indication: RHEUMATOID ARTHRITIS
     Dosage: UNK
     Dates: start: 20151118, end: 20160614
  3. PREDONINE [Concomitant]
     Active Substance: PREDNISOLONE
     Dosage: 5 MG, 1D
     Dates: start: 20160415
  4. RHEUMATREX [Concomitant]
     Active Substance: METHOTREXATE SODIUM
     Indication: RHEUMATOID ARTHRITIS
     Dosage: 10 MG, WE
     Dates: end: 20160210
  5. RHEUMATREX [Concomitant]
     Active Substance: METHOTREXATE SODIUM
     Dosage: 8 MG, WE
     Dates: start: 20160211, end: 20160316
  6. RHEUMATREX [Concomitant]
     Active Substance: METHOTREXATE SODIUM
     Dosage: 6 MG, WE
     Dates: start: 20160317, end: 20160406
  7. VALTREX [Suspect]
     Active Substance: VALACYCLOVIR HYDROCHLORIDE
     Indication: HERPES ZOSTER
     Dosage: 3000 MG, 1D
     Route: 048
     Dates: start: 20170110
  8. LYRICA [Concomitant]
     Active Substance: PREGABALIN
     Indication: HERPES ZOSTER
     Dosage: 100 MG, 1D
     Dates: start: 20170110

REACTIONS (2)
  - Malaise [Recovered/Resolved]
  - Drug-induced liver injury [Recovered/Resolved]

NARRATIVE: CASE EVENT DATE: 20170117
